FAERS Safety Report 16271551 (Version 1)
Quarter: 2019Q2

REPORT INFORMATION
  Report Type: Report from Study
  Country: GB (occurrence: GB)
  Receive Date: 20190503
  Receipt Date: 20190503
  Transmission Date: 20190711
  Serious: Yes (Other)
  Sender: FDA-Public Use
  Company Number: GB-JNJFOC-20190438617

PATIENT

DRUGS (2)
  1. DEXAMETHASONE. [Concomitant]
     Active Substance: DEXAMETHASONE
     Indication: PROPHYLAXIS
     Route: 065
  2. DARATUMUMAB [Suspect]
     Active Substance: DARATUMUMAB
     Indication: PLASMA CELL MYELOMA
     Dosage: 2 TO 20 COURSES; DOSES: 2 TO 20 UNITS.
     Route: 065

REACTIONS (5)
  - Haemolysis [Recovered/Resolved]
  - Lower respiratory tract infection [Unknown]
  - Infusion related reaction [Unknown]
  - Off label use [Unknown]
  - Incorrect route of product administration [Unknown]
